FAERS Safety Report 23135153 (Version 1)
Quarter: 2023Q4

REPORT INFORMATION
  Report Type: Spontaneous
  Country: ES (occurrence: None)
  Receive Date: 20231101
  Receipt Date: 20231101
  Transmission Date: 20240110
  Serious: Yes (Other)
  Sender: FDA-Public Use
  Company Number: 2023A246911

PATIENT
  Age: 77 Year
  Sex: Female

DRUGS (1)
  1. CRESTOR [Suspect]
     Active Substance: ROSUVASTATIN CALCIUM
     Indication: Hypercholesterolaemia
     Dosage: 1 DOSAGE FORM, 1/DAY
     Route: 048
     Dates: start: 20230523

REACTIONS (2)
  - Chronic kidney disease [Recovered/Resolved]
  - Blood creatine abnormal [Recovering/Resolving]

NARRATIVE: CASE EVENT DATE: 20230818
